FAERS Safety Report 5289835-3 (Version None)
Quarter: 2007Q2

REPORT INFORMATION
  Report Type: 
  Country: None (occurrence: None)
  Receive Date: 20070406
  Receipt Date: 20070322
  Transmission Date: 20071010
  Serious: Yes (Hospitalization)
  Sender: FDA-Public Use
  Company Number: FR-JNJFOC-20070305746

PATIENT
  Age: 63 Year
  Sex: Female
  Weight: 65 kg

DRUGS (7)
  1. REMICADE [Suspect]
     Dosage: EVERY 9 OR 10 WEEKS
     Route: 042
  2. REMICADE [Suspect]
     Indication: RHEUMATOID ARTHRITIS
     Dosage: EVERY 9 OR 10 WEEKS
     Route: 042
  3. AZATHIOPRINE SODIUM [Suspect]
     Indication: RHEUMATOID ARTHRITIS
     Route: 048
  4. XALATAN [Concomitant]
     Indication: GLAUCOMA
     Route: 047
  5. LEVOTHYROXINE SODIUM [Concomitant]
     Indication: HYPOTHYROIDISM
     Route: 048
  6. TAMIK [Concomitant]
     Indication: HYPOTENSION
     Route: 048
  7. RISPERDAL [Concomitant]
     Indication: PSYCHOTIC DISORDER
     Route: 048

REACTIONS (1)
  - BASOSQUAMOUS CARCINOMA [None]
